FAERS Safety Report 8286536 (Version 11)
Quarter: 2012Q4

REPORT INFORMATION
  Report Type: 
  Country: IL (occurrence: IL)
  Receive Date: 20111213
  Receipt Date: 20120831
  Transmission Date: 20130627
  Serious: Yes (Death, Hospitalization)
  Sender: FDA-Public Use
  Company Number: IL-B.I. PHARMACEUTICALS,INC./RIDGEFIELD-2011-AP-00713RI

PATIENT
  Age: 66 Year
  Sex: Female
  Weight: 100 kg

DRUGS (7)
  1. PRADAXA [Suspect]
     Indication: CARDIAC VALVE DISEASE
     Dosage: 300 mg
     Dates: start: 201111, end: 20111208
  2. FUSID [Concomitant]
     Route: 048
  3. DIGOXIN [Concomitant]
     Route: 048
  4. CARDILOC [Concomitant]
     Route: 048
  5. ALDOSPIRON [Concomitant]
     Route: 048
  6. LIPITOR [Concomitant]
     Route: 048
  7. LOSARTAN [Concomitant]

REACTIONS (11)
  - Multi-organ failure [Fatal]
  - Shock [Unknown]
  - Renal failure acute [Unknown]
  - Haematemesis [Fatal]
  - Blood urine present [Fatal]
  - Skin haemorrhage [Fatal]
  - Mucosal haemorrhage [Fatal]
  - Vomiting [Unknown]
  - Diarrhoea [Unknown]
  - Hepatic enzyme abnormal [Unknown]
  - Dehydration [Unknown]
